FAERS Safety Report 19353267 (Version 2)
Quarter: 2021Q3

REPORT INFORMATION
  Report Type: Spontaneous
  Country: JP (occurrence: JP)
  Receive Date: 20210601
  Receipt Date: 20210702
  Transmission Date: 20211014
  Serious: Yes (Hospitalization, Other)
  Sender: FDA-Public Use
  Company Number: JP-AMGEN-JPNSP2021056643

PATIENT
  Age: 6 Decade
  Sex: Male

DRUGS (2)
  1. DARZALEX [Concomitant]
     Active Substance: DARATUMUMAB
     Indication: PLASMA CELL MYELOMA
     Dosage: 820 MG
     Route: 065
     Dates: start: 20201216, end: 20210402
  2. KYPROLIS [Suspect]
     Active Substance: CARFILZOMIB
     Indication: PLASMA CELL MYELOMA
     Dosage: 56 MG
     Route: 041
     Dates: start: 202012, end: 202103

REACTIONS (1)
  - Non-cardiogenic pulmonary oedema [Recovered/Resolved]

NARRATIVE: CASE EVENT DATE: 20210402
